FAERS Safety Report 14921266 (Version 2)
Quarter: 2018Q2

REPORT INFORMATION
  Report Type: Report from Study
  Country: KR (occurrence: KR)
  Receive Date: 20180521
  Receipt Date: 20180528
  Transmission Date: 20180711
  Serious: No
  Sender: FDA-Public Use
  Company Number: KR-B.I. PHARMACEUTICALS,INC./RIDGEFIELD-2018-BI-026887

PATIENT
  Age: 48 Year
  Sex: Female
  Weight: 86.8 kg

DRUGS (4)
  1. METGREEN [Concomitant]
     Indication: TYPE 2 DIABETES MELLITUS
     Dosage: SR TAB
     Route: 048
     Dates: start: 20170830
  2. TAMOPLEX [Concomitant]
     Indication: BREAST CANCER
     Route: 065
  3. JARDIANCE [Suspect]
     Active Substance: EMPAGLIFLOZIN
     Indication: TYPE 2 DIABETES MELLITUS
     Route: 048
     Dates: start: 20170830
  4. CENTIREX ADVANCE [Concomitant]
     Indication: BREAST CANCER
     Route: 065

REACTIONS (1)
  - Pollakiuria [Unknown]

NARRATIVE: CASE EVENT DATE: 20171122
